FAERS Safety Report 4867277-X (Version None)
Quarter: 2005Q4

REPORT INFORMATION
  Report Type: 
  Country: None (occurrence: None)
  Receive Date: 20051228
  Receipt Date: 20050921
  Transmission Date: 20060501
  Serious: Yes (Death)
  Sender: FDA-Public Use
  Company Number: PHEH2005US10491

PATIENT
  Age: 51 Year
  Sex: Male
  Weight: 108.84 kg

DRUGS (10)
  1. CLOZARIL [Suspect]
     Indication: SCHIZOAFFECTIVE DISORDER
     Dosage: 100MG Q8AM, 400MG Q8PM
     Route: 048
     Dates: end: 20050801
  2. ATENOLOL [Concomitant]
     Indication: HYPERTENSION
     Dosage: 25 MG, QD
     Route: 048
  3. PROLIXIN [Concomitant]
     Dosage: 10 MG, QHS
     Route: 048
  4. PROLIXIN [Concomitant]
     Dosage: 50 MG, Q 2WEEKS
     Route: 030
  5. COGENTIN [Concomitant]
     Dosage: 0.5 MG, BID
     Route: 048
  6. TRILEPTAL [Concomitant]
     Dosage: 300 MG, BID
     Route: 048
  7. ESKALITH [Concomitant]
     Dosage: 450 MG, QHS
     Route: 048
  8. SYNTHROID [Concomitant]
     Dosage: 150 UG, QD
     Route: 048
  9. LIPITOR [Concomitant]
     Dosage: 20 MG, QD
     Route: 048
  10. PREVACID [Concomitant]
     Dosage: 30 MG, QHS
     Route: 048

REACTIONS (2)
  - CARDIAC DISORDER [None]
  - MYOCARDIAL INFARCTION [None]
